FAERS Safety Report 14540485 (Version 2)
Quarter: 2018Q1

REPORT INFORMATION
  Report Type: Spontaneous
  Country: JP (occurrence: JP)
  Receive Date: 20180216
  Receipt Date: 20180228
  Transmission Date: 20180509
  Serious: No
  Sender: FDA-Public Use
  Company Number: JP-GLAXOSMITHKLINE-JP2018JPN024125

PATIENT
  Sex: Female

DRUGS (1)
  1. VENTOLINE [Suspect]
     Active Substance: ALBUTEROL
     Dosage: UNK
     Route: 055

REACTIONS (3)
  - Brain natriuretic peptide increased [Recovered/Resolved]
  - Wrong technique in product usage process [Unknown]
  - Chest discomfort [Recovered/Resolved]
